FAERS Safety Report 6570993-5 (Version None)
Quarter: 2010Q1

REPORT INFORMATION
  Report Type: 
  Country: None (occurrence: None)
  Receive Date: 20100203
  Receipt Date: 20100203
  Transmission Date: 20100710
  Serious: Yes (Other)
  Sender: FDA-Public Use
  Company Number: None

PATIENT
  Age: 78 Year
  Sex: Female
  Weight: 58.9676 kg

DRUGS (1)
  1. MULTAQ [Suspect]
     Indication: ATRIAL FIBRILLATION
     Dosage: 1/2 OF A 450 MG PILL TWICE DAILY PO
     Route: 048
     Dates: start: 20100122, end: 20100201

REACTIONS (6)
  - HEADACHE [None]
  - INCREASED UPPER AIRWAY SECRETION [None]
  - PRODUCT LABEL ISSUE [None]
  - PRODUCTIVE COUGH [None]
  - PULMONARY CONGESTION [None]
  - REACTION TO PRESERVATIVES [None]
